FAERS Safety Report 7361578-1 (Version None)
Quarter: 2011Q1

REPORT INFORMATION
  Report Type: 
  Country: None (occurrence: None)
  Receive Date: 20110318
  Receipt Date: 20110308
  Transmission Date: 20110831
  Serious: Yes (Hospitalization, Other)
  Sender: FDA-Public Use
  Company Number: ES-JNJFOC-20110306262

PATIENT
  Age: 57 Year
  Sex: Female

DRUGS (4)
  1. ZALDIAR [Suspect]
     Indication: SCIATICA
     Route: 048
     Dates: start: 20101226, end: 20101231
  2. EUTIROX [Concomitant]
     Indication: HYPOTHYROIDISM
  3. LYRICA [Suspect]
     Indication: SCIATICA
     Route: 048
  4. CELEBREX [Suspect]
     Indication: SCIATICA
     Route: 048
     Dates: start: 20101226, end: 20101231

REACTIONS (1)
  - PANCREATITIS ACUTE [None]
